FAERS Safety Report 25830665 (Version 1)
Quarter: 2025Q3

REPORT INFORMATION
  Report Type: Spontaneous
  Country: US (occurrence: None)
  Receive Date: 20250919
  Receipt Date: 20250919
  Transmission Date: 20251020
  Serious: No
  Sender: FDA-CTU
  Company Number: None

PATIENT

DRUGS (1)
  1. TYSABRI [Suspect]
     Active Substance: NATALIZUMAB

REACTIONS (3)
  - Screaming [None]
  - Therapy change [None]
  - Drug withdrawal syndrome [None]

NARRATIVE: CASE EVENT DATE: 20250919
